FAERS Safety Report 14075642 (Version 1)
Quarter: 2017Q4

REPORT INFORMATION
  Report Type: Spontaneous
  Country: US (occurrence: US)
  Receive Date: 20171010
  Receipt Date: 20171010
  Transmission Date: 20180321
  Serious: No
  Sender: FDA-Public Use
  Company Number: US-MYLANLABS-2016M1052161

PATIENT
  Sex: Male
  Weight: 190.93 kg

DRUGS (3)
  1. AMLODIPINE BESYLATE. [Concomitant]
     Active Substance: AMLODIPINE BESYLATE
  2. THIORIDAZINE [Suspect]
     Active Substance: THIORIDAZINE
     Indication: STRESS
     Dosage: 150 MG, HS
  3. ASPIRIN                            /00002701/ [Concomitant]
     Active Substance: ASPIRIN

REACTIONS (4)
  - Adverse event [Unknown]
  - Peripheral swelling [Unknown]
  - Ejaculation failure [Unknown]
  - Sexual dysfunction [Unknown]
